FAERS Safety Report 9457308 (Version 1)
Quarter: 2013Q3

REPORT INFORMATION
  Report Type: Report from Study
  Country: AR (occurrence: AR)
  Receive Date: 20130814
  Receipt Date: 20130814
  Transmission Date: 20140515
  Serious: Yes (Other)
  Sender: FDA-Public Use
  Company Number: PHHY2013AR086971

PATIENT
  Age: 65 Year
  Sex: Female

DRUGS (1)
  1. EXFORGE [Suspect]
     Dosage: 160/5 MG, DAILY
     Route: 048

REACTIONS (3)
  - Wrist fracture [Unknown]
  - Infarction [Unknown]
  - Memory impairment [Unknown]
